FAERS Safety Report 23728451 (Version 1)
Quarter: 2024Q2

REPORT INFORMATION
  Report Type: Report from Study
  Country: PH (occurrence: None)
  Receive Date: 20240410
  Receipt Date: 20240410
  Transmission Date: 20240716
  Serious: Yes (Death, Other)
  Sender: FDA-Public Use
  Company Number: 2020SE91675

PATIENT
  Sex: Female

DRUGS (1)
  1. IRESSA [Suspect]
     Active Substance: GEFITINIB
     Indication: Lung neoplasm malignant
     Dosage: 250.0MG UNKNOWN
     Route: 048

REACTIONS (2)
  - Renal disorder [Fatal]
  - Myocardial infarction [Unknown]
